FAERS Safety Report 4898476-9 (Version None)
Quarter: 2006Q1

REPORT INFORMATION
  Report Type: 
  Country: None (occurrence: None)
  Receive Date: 20060131
  Receipt Date: 20060131
  Transmission Date: 20060701
  Serious: Yes (Hospitalization, Other)
  Sender: FDA-Public Use
  Company Number: None

PATIENT
  Sex: Female
  Weight: 62.6 kg

DRUGS (9)
  1. CYTARABINE [Suspect]
     Indication: B PRECURSOR TYPE ACUTE LEUKAEMIA
     Dosage: 70 MG  INTRATHECAL X 1 DOSE
     Route: 037
     Dates: start: 20051220, end: 20051220
  2. CYTARABINE [Suspect]
     Indication: B PRECURSOR TYPE ACUTE LEUKAEMIA
     Dosage: 70 MG  INTRATHECAL X 1 DOSE
     Route: 037
     Dates: start: 20051222
  3. DAUNORUBICIN [Suspect]
     Dosage: 165.2 MG
     Dates: start: 20051222, end: 20060113
  4. DEXAMETHASONE [Suspect]
     Dosage: 224 MG
     Dates: start: 20051222, end: 20060104
  5. METHOTREXATE [Suspect]
     Dosage: 30 MG INTRATHECALLY X 2 DOSES
     Route: 037
     Dates: start: 20051229, end: 20060119
  6. METHOTREXATE [Suspect]
     Dosage: 30 MG INTRATHECALLY X 2 DOSES
     Route: 037
     Dates: start: 20051222
  7. ONCASPAR [Suspect]
     Dosage: 4125 IU
     Dates: start: 20051227, end: 20051227
  8. ONCASPAR [Suspect]
     Dosage: 4125 IU
     Dates: start: 20051222
  9. VINCRISTINE SULFATE [Suspect]
     Dosage: 8 MG
     Dates: start: 20051222, end: 20060113

REACTIONS (9)
  - BODY TEMPERATURE INCREASED [None]
  - CONVULSION [None]
  - HYPOTENSION [None]
  - HYPOVENTILATION [None]
  - IATROGENIC INJURY [None]
  - INTUBATION COMPLICATION [None]
  - LIFE SUPPORT [None]
  - PUPIL FIXED [None]
  - WHITE BLOOD CELL COUNT DECREASED [None]
